FAERS Safety Report 6715538-1 (Version None)
Quarter: 2010Q2

REPORT INFORMATION
  Report Type: 
  Country: None (occurrence: None)
  Receive Date: 20100507
  Receipt Date: 20100429
  Transmission Date: 20101027
  Serious: Yes (Other)
  Sender: FDA-Public Use
  Company Number: BR-ROCHE-692406

PATIENT
  Sex: Female
  Weight: 38 kg

DRUGS (8)
  1. BONIVA [Suspect]
     Indication: DRUG USE FOR UNKNOWN INDICATION
     Route: 065
     Dates: start: 20080901, end: 20100201
  2. MODURETIC 5-50 [Concomitant]
     Indication: HYPERTENSION
     Route: 048
     Dates: end: 20100201
  3. PANTOPRAZOLE [Concomitant]
     Route: 048
     Dates: end: 20100201
  4. MIRTAZAPINE [Concomitant]
     Indication: DEPRESSION
     Route: 048
     Dates: end: 20100201
  5. ROSUVASTATIN [Concomitant]
     Route: 048
     Dates: end: 20100201
  6. OSCAL D [Concomitant]
     Indication: OSTEOPOROSIS
     Dosage: DOSE: 400 MG/400 IU
     Route: 048
     Dates: end: 20100201
  7. FUROSEMIDE [Concomitant]
  8. OMEPRAZOLE [Concomitant]

REACTIONS (3)
  - DECREASED APPETITE [None]
  - RENAL FAILURE [None]
  - WEIGHT DECREASED [None]
